FAERS Safety Report 9644187 (Version 2)
Quarter: 2013Q4

REPORT INFORMATION
  Report Type: Spontaneous
  Country: SE (occurrence: SE)
  Receive Date: 20131024
  Receipt Date: 20131024
  Transmission Date: 20140711
  Serious: Yes (Hospitalization)
  Sender: FDA-Public Use
  Company Number: SE-ROCHE-1156131

PATIENT
  Age: 57 Year
  Sex: Female

DRUGS (2)
  1. ROACTEMRA [Suspect]
     Indication: RHEUMATOID ARTHRITIS
     Dosage: 20 MG/ML, 480 MGN
     Route: 042
     Dates: start: 20091215, end: 20120907
  2. PREDNISOLON [Concomitant]

REACTIONS (6)
  - Abscess [Not Recovered/Not Resolved]
  - Diverticular perforation [Unknown]
  - Abdominal pain [Unknown]
  - Diarrhoea [Not Recovered/Not Resolved]
  - Pyrexia [Unknown]
  - Large intestinal ulcer haemorrhage [Not Recovered/Not Resolved]
